FAERS Safety Report 10187891 (Version 2)
Quarter: 2015Q2

REPORT INFORMATION
  Report Type: Spontaneous
  Country: US (occurrence: US)
  Receive Date: 20140522
  Receipt Date: 20150604
  Transmission Date: 20150821
  Serious: Yes (Other)
  Sender: FDA-Public Use
  Company Number: US-SANOFI-AVENTIS-2013SA094807

PATIENT
  Age: 71 Year
  Sex: Male

DRUGS (6)
  1. LANTUS SOLOSTAR [Suspect]
     Active Substance: INSULIN GLARGINE
     Indication: TYPE 2 DIABETES MELLITUS
     Dosage: DOSE:6 UNITS,8UNITS,, 16 UNITS 18 UNITS, 12-14 UNITS
     Route: 065
  2. METFORMIN [Concomitant]
     Active Substance: METFORMIN HYDROCHLORIDE
  3. SOLOSTAR [Concomitant]
     Active Substance: DEVICE
     Indication: TYPE 2 DIABETES MELLITUS
     Dosage: TAKEN FROM-COUPLE OF YEARS
  4. SOLOSTAR [Concomitant]
     Active Substance: DEVICE
     Indication: TYPE 2 DIABETES MELLITUS
     Dosage: TAKEN FROM-COUPLE OF YEARS
  5. GLIMEPIRIDE. [Concomitant]
     Active Substance: GLIMEPIRIDE
  6. LANTUS SOLOSTAR [Suspect]
     Active Substance: INSULIN GLARGINE
     Indication: TYPE 2 DIABETES MELLITUS
     Dosage: TAKEN FROM-COUPLE OF YEARS, DOSE- 14-18 UNITS
     Route: 051

REACTIONS (9)
  - Anaphylactic reaction [Unknown]
  - Injection site pain [Not Recovered/Not Resolved]
  - Blood glucose fluctuation [Unknown]
  - Blood glucose decreased [Unknown]
  - Injection site discomfort [Not Recovered/Not Resolved]
  - Muscular weakness [Recovered/Resolved]
  - Gait disturbance [Not Recovered/Not Resolved]
  - Pain in extremity [Recovered/Resolved]
  - Fear of falling [Not Recovered/Not Resolved]

NARRATIVE: CASE EVENT DATE: 201309
